FAERS Safety Report 17800187 (Version 3)
Quarter: 2020Q2

REPORT INFORMATION
  Report Type: Spontaneous
  Country: US (occurrence: US)
  Receive Date: 20200518
  Receipt Date: 20200527
  Transmission Date: 20200714
  Serious: No
  Sender: FDA-Public Use
  Company Number: US-PFIZER INC-2020196165

PATIENT
  Age: 6 Month
  Sex: Male
  Weight: 8.62 kg

DRUGS (1)
  1. EUCRISA [Suspect]
     Active Substance: CRISABOROLE
     Indication: ECZEMA
     Dosage: APPLIED TO FACE SMALLER THAN A PEA SIZE ONCE
     Dates: start: 20200504, end: 20200504

REACTIONS (4)
  - Pain [Recovered/Resolved]
  - Chemical burn of skin [Recovered/Resolved with Sequelae]
  - Crying [Recovered/Resolved]
  - Face injury [Not Recovered/Not Resolved]

NARRATIVE: CASE EVENT DATE: 20200504
